FAERS Safety Report 9015771 (Version 1)
Quarter: 2013Q1

REPORT INFORMATION
  Report Type: Spontaneous
  Country: JP (occurrence: None)
  Receive Date: 20130102
  Receipt Date: 20130102
  Transmission Date: 20140127
  Serious: Yes (Hospitalization, Other)
  Sender: FDA-Public Use
  Company Number: 2009JP005830

PATIENT
  Age: 42 Year
  Sex: Female
  Weight: 88 kg

DRUGS (43)
  1. PROGRAF (TACROLIMUS) CAPSULE [Suspect]
     Indication: LUPUS NEPHRITIS
     Route: 048
     Dates: start: 20080827
  2. PREDNISOLONE [Suspect]
     Indication: LUPUS NEPHRITIS
     Route: 048
     Dates: end: 20100622
  3. PREDNISOLONE SODIUM SUCCINATE [Suspect]
     Indication: LUPUS NEPHRITIS
     Dates: start: 20101012, end: 20101015
  4. METHYLPREDNISOLONE [Suspect]
     Indication: LUPUS NEPHRITIS
     Route: 041
     Dates: start: 20101015, end: 20101017
  5. LIPITOR (ATORVASTATIN CALCIUM) TABLET [Concomitant]
  6. BLOSTAR M (FAMOTIDINE) TABLET [Concomitant]
  7. ATELEC (CILNIDIPINE) TABLET ONGOING [Concomitant]
  8. DIOVAN (VALSARTAN) TABLET ONGOING [Concomitant]
  9. YAKUBAN (FLURBIPROFEN) [Concomitant]
  10. NEGMIN (POVIDONE-IODINE) [Concomitant]
  11. OMEPRAZOLE (OMEPRAZOLE) ENTERIC TABLET [Concomitant]
  12. PL GRAN (CAFFEINE, PARACETAMOL, PROMETHAZINE METHYLENE DISALICYLATE, SALICYLAMIDE) GRANULE [Concomitant]
  13. LORFENAMIN (LOXOPROFEN SODIUM) TABLET [Concomitant]
  14. ASTHPHYLLIN (DIPHENHYDRAMINE HODROCHLORIDE, DIPROPHYLLINE, EPHEDRINE HYDROCHLORIDE) TABLET [Concomitant]
  15. SOLANTAL (TIARAMIDE HYDROCHLORIDE) TABLET [Concomitant]
  16. MINOMYCIN (MINOCYCLINE HYDROCHLORIDE) TABLET [Concomitant]
  17. DASEN (SERRAPEPTASE) TABLET [Concomitant]
  18. ALLOID G (SODIUM ALGINATE) SOLUTION (ORAL USE) [Concomitant]
  19. FERROMIA/00023516/(FERROUS CITRATE) TABLET [Concomitant]
  20. ABILIFY (ARIPIPRAZOLE) POWDER [Concomitant]
  21. HALCION (TRIAZOLAM) TABLET [Concomitant]
  22. VONFENAC (DICLOFENAC SODIUM) SUPPOSITORY [Concomitant]
  23. BACTRAMIN (SULFAMETHOXAZOLE, TRIMETHOPRIM) TABLET [Concomitant]
  24. ALESION (EPINASTINE HYDROCHLORIDE) TABLET [Concomitant]
  25. MIYA BM (CLOSTRIDUM BUTYRICUM) PER ORAL NOS [Concomitant]
  26. SODIUM BICARBONATE (SODIUM BICARBONATE) PER ORAL NOS [Concomitant]
  27. TOYOFAROL (ALFACALICIDOL) CAPSULE [Concomitant]
  28. BONALON (ALENDRONATE SODIUM) TABLET [Concomitant]
  29. LIMAS (LITHIUM CARBONATE) TABLET [Concomitant]
  30. LONASEN (BLONANSERIN) TABLET [Concomitant]
  31. AKINETON/00079502/(BIPERIDEN HYDROCHLORIDE) TABLET [Concomitant]
  32. WINTERMIN/00011902/(CHLORPROMAZINE HYDROCHLORIDE) FINE GRANULE [Concomitant]
  33. HIBERNA/00033006/(PROMETHAZINE HIBENZATE) POWDER [Concomitant]
  34. ROHYPNOL (FLUNITRAZEPAM) TABLET [Concomitant]
  35. NELBON (NITRAZEPAM) POWDER [Concomitant]
  36. ABILIFY (ARIPIPRAZOLE) SOLUTION (ORAL USE) [Concomitant]
  37. LEVOTOMIN/00038602/(LEVOMEPROMAZINE MALEATE) POWDER [Concomitant]
  38. PHENOBARBITAL (PHENOBARBITAL) POWDER [Concomitant]
  39. FOSMICIN/00552502/(FOSFOMYCIN CALCIUM) TABLET [Concomitant]
  40. NAUZELIN (DOMPERIDONE) TABLET [Concomitant]
  41. BUSCOPAN (HYOSCINE BUTYLBROMIDE) TABLET [Concomitant]
  42. RIZE/00624801/(CLOTIAZEPAM) TABLET [Concomitant]
  43. BUFFERIN (MECLOZINE HYDROCHLORIDE) TABLET [Concomitant]

REACTIONS (10)
  - Neuropsychiatric lupus [None]
  - Bronchitis [None]
  - Iron deficiency anaemia [None]
  - Pruritus [None]
  - Diarrhoea [None]
  - Metabolic acidosis [None]
  - Enteritis infectious [None]
  - Nasopharyngitis [None]
  - Gastritis [None]
  - Condition aggravated [None]
